FAERS Safety Report 18698384 (Version 1)
Quarter: 2021Q1

REPORT INFORMATION
  Report Type: Spontaneous
  Country: US (occurrence: US)
  Receive Date: 20210104
  Receipt Date: 20210104
  Transmission Date: 20210419
  Serious: Yes (Other)
  Sender: FDA-Public Use
  Company Number: US-PURDUE-USA-2020-0185255

PATIENT
  Sex: Female

DRUGS (7)
  1. OXYCONTIN [Suspect]
     Active Substance: OXYCODONE HYDROCHLORIDE
     Indication: PRODUCT USED FOR UNKNOWN INDICATION
     Dosage: UNK
     Route: 048
  2. OXYCODONE/ ACETAMINOPHEN TABLETS [Suspect]
     Active Substance: ACETAMINOPHEN\OXYCODONE HYDROCHLORIDE
     Indication: PRODUCT USED FOR UNKNOWN INDICATION
     Dosage: 5?325MG
     Route: 048
  3. PERCOCET [Suspect]
     Active Substance: ACETAMINOPHEN\OXYCODONE HYDROCHLORIDE
     Indication: PAIN
     Dosage: 10?325 MG
     Route: 048
  4. OXYCODONE HYDROCHLORIDE (SIMILAR TO NDA 22?272) [Suspect]
     Active Substance: OXYCODONE HYDROCHLORIDE
     Indication: PAIN
     Dosage: UNK
     Route: 048
  5. HYDROCODONE BITARTRATE AND ACETAMINOPHEN [Suspect]
     Active Substance: ACETAMINOPHEN\HYDROCODONE BITARTRATE
     Indication: PAIN
     Dosage: 5?500 MG
     Route: 048
  6. OXYCODONE HCL CR TABLETS (SIMILAR TO NDA 22?272) [Suspect]
     Active Substance: OXYCODONE HYDROCHLORIDE
     Indication: PRODUCT USED FOR UNKNOWN INDICATION
     Dosage: UNK
     Route: 048
  7. TRAMADOL HCL [Suspect]
     Active Substance: TRAMADOL HYDROCHLORIDE
     Indication: PAIN
     Dosage: 50 MG, UNK
     Route: 048

REACTIONS (55)
  - Pyrexia [Unknown]
  - Dysphonia [Unknown]
  - Skin exfoliation [Unknown]
  - Neck pain [Unknown]
  - Amnesia [Unknown]
  - Balance disorder [Unknown]
  - Dysuria [Unknown]
  - Deafness [Unknown]
  - Erectile dysfunction [Unknown]
  - Heart rate decreased [Unknown]
  - Vomiting [Unknown]
  - Rhinorrhoea [Unknown]
  - Restlessness [Unknown]
  - Illness [Unknown]
  - Cold sweat [Unknown]
  - Clumsiness [Unknown]
  - Muscle twitching [Unknown]
  - Stomatitis [Unknown]
  - Cough [Unknown]
  - Dental caries [Unknown]
  - Headache [Unknown]
  - Pain in extremity [Unknown]
  - Depression [Unknown]
  - Tinnitus [Unknown]
  - Visual impairment [Unknown]
  - Dizziness postural [Unknown]
  - Dizziness [Unknown]
  - Chest discomfort [Unknown]
  - Dermatitis [Unknown]
  - Muscular weakness [Unknown]
  - Sexual dysfunction [Unknown]
  - Increased appetite [Unknown]
  - Pain [Unknown]
  - Abdominal distension [Unknown]
  - Dysgeusia [Unknown]
  - Fatigue [Unknown]
  - Memory impairment [Unknown]
  - Hypoaesthesia [Unknown]
  - Asthenia [Unknown]
  - Hypertonia [Unknown]
  - Nausea [Unknown]
  - Constipation [Unknown]
  - Dyspnoea [Unknown]
  - Mood swings [Unknown]
  - Irritability [Unknown]
  - Dry skin [Unknown]
  - Persecutory delusion [Unknown]
  - Cardiac disorder [Unknown]
  - Somnolence [Unknown]
  - Abdominal pain upper [Unknown]
  - Chills [Unknown]
  - Confusional state [Unknown]
  - Oropharyngeal pain [Unknown]
  - Dysarthria [Unknown]
  - Blood urine present [Unknown]
